FAERS Safety Report 7096627 (Version 2)
Quarter: 2013Q3

REPORT INFORMATION
  Report Type: Spontaneous
  Country: US (occurrence: US)
  Receive Date: 20090825
  Receipt Date: 20130725
  Transmission Date: 20140515
  Serious: No
  Sender: FDA-Public Use
  Company Number: US-ABBOTT-09P-163-0564555-00

PATIENT
  Age: 54 Year
  Sex: Female
  Weight: 98.52 kg

DRUGS (5)
  1. SYNTHROID 88 MCG [Suspect]
     Indication: HYPOTHYROIDISM
     Route: 048
     Dates: start: 2003
  2. ALBUTEROL [Concomitant]
     Indication: ASTHMA
  3. FLONASE [Concomitant]
     Indication: SEASONAL ALLERGY
     Route: 045
  4. UNNAMED INHALERS [Concomitant]
     Indication: ASTHMA
     Route: 055
  5. CLARITIN [Concomitant]
     Indication: SEASONAL ALLERGY

REACTIONS (2)
  - Coeliac disease [Not Recovered/Not Resolved]
  - Condition aggravated [Unknown]
